FAERS Safety Report 11799705 (Version 3)
Quarter: 2018Q2

REPORT INFORMATION
  Report Type: Report from Study
  Country: PA (occurrence: PA)
  Receive Date: 20151203
  Receipt Date: 20180420
  Transmission Date: 20180711
  Serious: Yes (Other)
  Sender: FDA-Public Use
  Company Number: PHHY2015PA030621

PATIENT
  Age: 20 Year
  Sex: Male

DRUGS (1)
  1. EXJADE [Suspect]
     Active Substance: DEFERASIROX
     Indication: IRON OVERLOAD
     Dosage: 3 DF OF 500 MG, UNK
     Route: 048

REACTIONS (12)
  - Psychomotor hyperactivity [Unknown]
  - Malaise [Unknown]
  - Depressed mood [Unknown]
  - Mood altered [Unknown]
  - Transferrin saturation [Unknown]
  - Dyskinesia [Unknown]
  - Inappropriate schedule of drug administration [Unknown]
  - Condition aggravated [Unknown]
  - Insomnia [Unknown]
  - Wrong technique in product usage process [Unknown]
  - Cerebrovascular accident [Unknown]
  - Serum ferritin increased [Unknown]
